FAERS Safety Report 20542072 (Version 1)
Quarter: 2022Q1

REPORT INFORMATION
  Report Type: Spontaneous
  Country: ES (occurrence: ES)
  Receive Date: 20220302
  Receipt Date: 20220302
  Transmission Date: 20220423
  Serious: Yes (Other)
  Sender: FDA-Public Use
  Company Number: ES-JNJFOC-20211042577

PATIENT
  Age: 71 Year
  Sex: Male

DRUGS (2)
  1. ERLEADA [Suspect]
     Active Substance: APALUTAMIDE
     Indication: Prostate cancer
     Dosage: 4 TALETS
     Route: 048
     Dates: start: 202105
  2. GONADORELIN [Concomitant]
     Active Substance: GONADORELIN
     Dosage: CURRENTLY ON SECOND INJECTION

REACTIONS (2)
  - Asphyxia [Not Recovered/Not Resolved]
  - Hyperhidrosis [Not Recovered/Not Resolved]
